FAERS Safety Report 13445343 (Version 2)
Quarter: 2017Q2

REPORT INFORMATION
  Report Type: Report from Study
  Country: FR (occurrence: FR)
  Receive Date: 20170414
  Receipt Date: 20170501
  Transmission Date: 20170830
  Serious: Yes (Hospitalization)
  Sender: FDA-Public Use
  Company Number: PHHO2017FR006422

PATIENT
  Age: 66 Year
  Sex: Male
  Weight: 102 kg

DRUGS (12)
  1. PAROXETINE. [Concomitant]
     Active Substance: PAROXETINE
     Indication: DEPRESSION
     Route: 065
  2. ESIDREX [Concomitant]
     Active Substance: HYDROCHLOROTHIAZIDE
     Indication: HYPERTENSION
     Dosage: 25 UNK, UNK
     Route: 065
  3. INNOHEP [Concomitant]
     Active Substance: TINZAPARIN SODIUM
     Indication: PULMONARY EMBOLISM
     Dosage: UNK
     Route: 065
     Dates: start: 20170310, end: 20170331
  4. OXYNORMORO [Concomitant]
     Active Substance: OXYCODONE
     Indication: TUMOUR PAIN
     Route: 065
  5. LANTUS [Concomitant]
     Active Substance: INSULIN GLARGINE
     Indication: TYPE 2 DIABETES MELLITUS
     Dosage: 48 U, QD
     Route: 065
  6. ZOLPIDEM [Concomitant]
     Active Substance: ZOLPIDEM\ZOLPIDEM TARTRATE
     Indication: DEPRESSION
     Route: 065
  7. PAZOPANIB [Suspect]
     Active Substance: PAZOPANIB
     Indication: EXTRASKELETAL MYXOID CHONDROSARCOMA
     Dosage: 800 MG, QD
     Route: 048
     Dates: start: 20160216, end: 20160410
  8. PAZOPANIB [Suspect]
     Active Substance: PAZOPANIB
     Dosage: 600 MG, QD
     Route: 048
     Dates: start: 20160411
  9. LERCANIDIPINE [Concomitant]
     Active Substance: LERCANIDIPINE
     Indication: HYPERTENSION
     Dosage: 10 UNK, UNK
     Route: 065
  10. COVERSYL [Concomitant]
     Active Substance: PERINDOPRIL
     Indication: HYPERTENSION
     Route: 065
  11. OXYCONTIN [Concomitant]
     Active Substance: OXYCODONE HYDROCHLORIDE
     Indication: TUMOUR PAIN
     Route: 065
  12. LYRICA [Concomitant]
     Active Substance: PREGABALIN
     Indication: TUMOUR PAIN
     Route: 065

REACTIONS (1)
  - Anaemia [Not Recovered/Not Resolved]

NARRATIVE: CASE EVENT DATE: 20170331
